FAERS Safety Report 17119661 (Version 1)
Quarter: 2019Q4

REPORT INFORMATION
  Report Type: Report from Study
  Country: CA (occurrence: CA)
  Receive Date: 20191206
  Receipt Date: 20191206
  Transmission Date: 20200122
  Serious: Yes (Hospitalization)
  Sender: FDA-Public Use
  Company Number: CA-REGENERON PHARMACEUTICALS, INC.-2019-71496

PATIENT

DRUGS (2)
  1. CEMIPLIMAB [Suspect]
     Active Substance: CEMIPLIMAB
     Indication: SKIN SQUAMOUS CELL CARCINOMA METASTATIC
     Dosage: UNK UNK, QCY
     Route: 042
     Dates: start: 20190906, end: 20190906
  2. CEMIPLIMAB [Suspect]
     Active Substance: CEMIPLIMAB
     Dosage: UNK, QCY
     Route: 042
     Dates: start: 20191128, end: 20191128

REACTIONS (8)
  - Pulse abnormal [Recovering/Resolving]
  - Hypotension [Recovering/Resolving]
  - Blood pressure abnormal [Recovering/Resolving]
  - Fall [Recovering/Resolving]
  - Body temperature abnormal [Recovering/Resolving]
  - Fatigue [Recovering/Resolving]
  - Hypoglycaemia [Recovering/Resolving]
  - Loss of consciousness [Not Recovered/Not Resolved]
